APPROVED DRUG PRODUCT: FACTREL
Active Ingredient: GONADORELIN HYDROCHLORIDE
Strength: EQ 0.5MG BASE/VIAL
Dosage Form/Route: INJECTABLE;INJECTION
Application: N018123 | Product #003
Applicant: HIKMA PHARMACEUTICALS USA INC
Approved: Sep 30, 1982 | RLD: No | RS: No | Type: DISCN